FAERS Safety Report 9285124 (Version 1)
Quarter: 2013Q2

REPORT INFORMATION
  Report Type: Spontaneous
  Country: US (occurrence: US)
  Receive Date: 20130513
  Receipt Date: 20130513
  Transmission Date: 20140414
  Serious: Yes (Death, Other)
  Sender: FDA-Public Use
  Company Number: US-JNJFOC-20130418094

PATIENT
  Age: 51 Year
  Sex: Male

DRUGS (2)
  1. CLADRIBINE [Suspect]
     Indication: HAIRY CELL LEUKAEMIA
     Dosage: 7 DAYS
     Route: 042
  2. METHOTREXATE [Suspect]
     Indication: HAIRY CELL LEUKAEMIA
     Dosage: HIGH DOSE
     Route: 065

REACTIONS (6)
  - Gastrointestinal haemorrhage [Fatal]
  - Escherichia sepsis [Fatal]
  - Anaemia [Unknown]
  - Haemorrhage [Unknown]
  - Neutropenia [Unknown]
  - Pyrexia [Recovered/Resolved]
